FAERS Safety Report 5946641-1 (Version None)
Quarter: 2008Q4

REPORT INFORMATION
  Report Type: 
  Country: None (occurrence: None)
  Receive Date: 20081110
  Receipt Date: 20081030
  Transmission Date: 20090506
  Serious: Yes (Death, Hospitalization, Other)
  Sender: FDA-Public Use
  Company Number: ES-ROCHE-578870

PATIENT
  Sex: Male
  Weight: 89 kg

DRUGS (8)
  1. MIRCERA [Suspect]
     Dosage: GIVEN MONTHLY. FORM: PREFILLED SYRINGE.
     Route: 042
     Dates: start: 20080701
  2. MIRCERA [Suspect]
     Dosage: GIVEN PER 3 WEEKS. ROUTE/FORM: UNKNOWN.
     Route: 042
     Dates: start: 20080802
  3. MIRCERA [Suspect]
     Dosage: GIVEN PER 3 WEEKS. ROUTE/FORM: UNKNOWN.
     Route: 042
     Dates: start: 20080821
  4. MIRCERA [Suspect]
     Dosage: GIVEN PER 15 DAYS. ROUTE/FORM: UNKNOWN.
     Route: 042
     Dates: start: 20080902
  5. MIRCERA [Suspect]
     Dosage: GIVEN PER 15 DAYS. ROUTE/FORM: UNKNOWN.
     Route: 042
     Dates: start: 20080916
  6. NEORECORMON [Suspect]
     Dosage: GIVEN WEEKLY. FORM: PREFILLED SYRINGE.
     Route: 042
     Dates: start: 20071226, end: 20080402
  7. NEORECORMON [Suspect]
     Dosage: GIVEN WEEKLY. FORM: PREFILLED SYRINGE.
     Route: 042
     Dates: start: 20080403, end: 20080630
  8. EPOETIN ALFA [Concomitant]
     Dosage: GIVEN WEEKLY. FORM: PREFILLED SYRINGE. DRUG NAME: EPO ALFA - EPOPEN.
     Route: 042
     Dates: start: 20070910, end: 20071224

REACTIONS (3)
  - DRUG INEFFECTIVE [None]
  - HAEMOGLOBIN DECREASED [None]
  - HYPERKALAEMIA [None]
